FAERS Safety Report 9863180 (Version 2)
Quarter: 2016Q2

REPORT INFORMATION
  Report Type: Report from Study
  Country: US (occurrence: US)
  Receive Date: 20140203
  Receipt Date: 20160510
  Transmission Date: 20160815
  Serious: Yes (Death)
  Sender: FDA-Public Use
  Company Number: US-ROCHE-1316942

PATIENT
  Age: 50 Year
  Sex: Female
  Weight: 50.85 kg

DRUGS (22)
  1. DECADRON [Concomitant]
     Active Substance: DEXAMETHASONE
     Route: 042
  2. ZOFRAN [Concomitant]
     Active Substance: ONDANSETRON HYDROCHLORIDE
     Dosage: AS NEEDED
     Route: 065
  3. ARANESP [Concomitant]
     Active Substance: DARBEPOETIN ALFA
     Indication: ANAEMIA
     Route: 065
  4. MARINOL (UNITED STATES) [Concomitant]
     Route: 065
  5. FENTANYL. [Concomitant]
     Active Substance: FENTANYL
     Route: 065
  6. NEOMYCIN [Concomitant]
     Active Substance: NEOMYCIN
     Route: 065
  7. CISPLATIN. [Concomitant]
     Active Substance: CISPLATIN
     Route: 042
  8. GEMZAR [Concomitant]
     Active Substance: GEMCITABINE HYDROCHLORIDE
     Route: 042
     Dates: start: 201005, end: 201009
  9. ATIVAN [Concomitant]
     Active Substance: LORAZEPAM
     Route: 042
  10. EMEND [Concomitant]
     Active Substance: APREPITANT
     Route: 048
  11. NEUPOGEN [Concomitant]
     Active Substance: FILGRASTIM
     Route: 065
  12. AVASTIN [Suspect]
     Active Substance: BEVACIZUMAB
     Indication: LUNG NEOPLASM MALIGNANT
  13. FOLATE [Concomitant]
     Active Substance: FOLATE SODIUM
     Route: 065
     Dates: start: 20101104
  14. ALIMTA [Concomitant]
     Active Substance: PEMETREXED DISODIUM
     Route: 042
  15. ALOXI [Concomitant]
     Active Substance: PALONOSETRON HYDROCHLORIDE
     Route: 042
     Dates: start: 20101111
  16. VITAMIN B12 [Concomitant]
     Active Substance: CYANOCOBALAMIN
     Dosage: 1000 MCG
     Route: 065
     Dates: start: 20101104
  17. AVASTIN [Suspect]
     Active Substance: BEVACIZUMAB
     Indication: OVARIAN CANCER METASTATIC
     Route: 042
     Dates: start: 20101111
  18. DOXIL [Concomitant]
     Active Substance: DOXORUBICIN HYDROCHLORIDE
     Route: 042
  19. EMEND [Concomitant]
     Active Substance: APREPITANT
     Route: 048
  20. HYDROCODONE BITARTRATE AND ACETAMINOPHEN [Concomitant]
     Active Substance: ACETAMINOPHEN\HYDROCODONE BITARTRATE
     Dosage: 1-2 TABLET, 4-6 HOURS FOR BREAKTHROUGH PAIN
     Route: 065
  21. NEULASTA [Concomitant]
     Active Substance: PEGFILGRASTIM
     Route: 058
  22. VITAMIN B6 [Concomitant]
     Active Substance: PYRIDOXINE HYDROCHLORIDE
     Route: 065

REACTIONS (17)
  - Fatigue [Unknown]
  - Dizziness [Unknown]
  - Herpes zoster [Unknown]
  - Anaemia [Unknown]
  - Hypotension [Unknown]
  - Asthenia [Unknown]
  - Stomatitis [Unknown]
  - Skin ulcer [Unknown]
  - Constipation [Unknown]
  - Death [Fatal]
  - Blister [Unknown]
  - Epistaxis [Unknown]
  - Dehydration [Unknown]
  - Neuropathy peripheral [Unknown]
  - Mucous stools [Unknown]
  - Abdominal pain [Recovering/Resolving]
  - Wound [Unknown]

NARRATIVE: CASE EVENT DATE: 20101202
